FAERS Safety Report 18007417 (Version 9)
Quarter: 2023Q2

REPORT INFORMATION
  Report Type: Spontaneous
  Country: US (occurrence: US)
  Receive Date: 20200710
  Receipt Date: 20230528
  Transmission Date: 20230721
  Serious: Yes (Hospitalization, Other)
  Sender: FDA-Public Use
  Company Number: US-GILEAD-2020-0481205

PATIENT
  Sex: Female
  Weight: 54.422 kg

DRUGS (21)
  1. TRUVADA [Suspect]
     Active Substance: EMTRICITABINE\TENOFOVIR DISOPROXIL FUMARATE
     Indication: HIV infection
     Dosage: UNK
     Route: 048
     Dates: start: 20080101, end: 20080601
  2. TRUVADA [Suspect]
     Active Substance: EMTRICITABINE\TENOFOVIR DISOPROXIL FUMARATE
     Dosage: UNK
     Route: 048
     Dates: start: 200801, end: 200806
  3. ATRIPLA [Suspect]
     Active Substance: EFAVIRENZ\EMTRICITABINE\TENOFOVIR DISOPROXIL FUMARATE
     Indication: HIV infection
     Dosage: UNK
     Route: 048
     Dates: start: 20080601, end: 20131201
  4. ATRIPLA [Suspect]
     Active Substance: EFAVIRENZ\EMTRICITABINE\TENOFOVIR DISOPROXIL FUMARATE
     Dosage: UNK
     Route: 048
     Dates: start: 200806, end: 201312
  5. ACETAMINOPHEN [Concomitant]
     Active Substance: ACETAMINOPHEN
  6. ACYCLOVIR [Concomitant]
     Active Substance: ACYCLOVIR
  7. ASPIRIN [Concomitant]
     Active Substance: ASPIRIN
  8. FAMOTIDINE [Concomitant]
     Active Substance: FAMOTIDINE
  9. LITHIUM [Concomitant]
     Active Substance: LITHIUM
  10. PANTOPRAZOLE [Concomitant]
     Active Substance: PANTOPRAZOLE
  11. PREDNISONE [Concomitant]
     Active Substance: PREDNISONE
  12. EPIVIR [Concomitant]
     Active Substance: LAMIVUDINE
  13. EPZICOM [Concomitant]
     Active Substance: ABACAVIR SULFATE\LAMIVUDINE
  14. PIFELTRO [Concomitant]
     Active Substance: DORAVIRINE
  15. SUSTIVA [Concomitant]
     Active Substance: EFAVIRENZ
  16. TIVICAY [Concomitant]
     Active Substance: DOLUTEGRAVIR SODIUM
  17. TRIUMEQ [Concomitant]
     Active Substance: ABACAVIR SULFATE\DOLUTEGRAVIR SODIUM\LAMIVUDINE
  18. CITALOPRAM [Concomitant]
     Active Substance: CITALOPRAM HYDROBROMIDE
  19. IBUPROFEN [Concomitant]
     Active Substance: IBUPROFEN
  20. METHADONE [Concomitant]
     Active Substance: METHADONE HYDROCHLORIDE
  21. OMEPRAZOLE [Concomitant]
     Active Substance: OMEPRAZOLE

REACTIONS (15)
  - Fanconi syndrome acquired [Not Recovered/Not Resolved]
  - Metabolic acidosis [Unknown]
  - Femur fracture [Recovered/Resolved]
  - Drug dependence [Recovered/Resolved]
  - Osteoporosis [Recovered/Resolved]
  - Chronic kidney disease [Unknown]
  - Pancreatitis [Unknown]
  - Renal failure [Unknown]
  - Emotional distress [Unknown]
  - Anxiety [Unknown]
  - Bone density decreased [Unknown]
  - Depression [Unknown]
  - Pain [Unknown]
  - Gait disturbance [Not Recovered/Not Resolved]
  - Dysstasia [Not Recovered/Not Resolved]

NARRATIVE: CASE EVENT DATE: 20120101
